FAERS Safety Report 5059099-4 (Version None)
Quarter: 2006Q3

REPORT INFORMATION
  Report Type: 
  Country: None (occurrence: None)
  Receive Date: 20060718
  Receipt Date: 20060705
  Transmission Date: 20061208
  Serious: Yes (Death)
  Sender: FDA-Public Use
  Company Number: 2006082926

PATIENT
  Age: 82 Year
  Sex: Male

DRUGS (8)
  1. NEURONTIN [Suspect]
     Indication: DRUG USE FOR UNKNOWN INDICATION
  2. PANTOPRAZOLE SODIUM [Suspect]
     Indication: DRUG USE FOR UNKNOWN INDICATION
  3. METOPROLOL (METOPROLOL) [Suspect]
     Indication: DRUG USE FOR UNKNOWN INDICATION
  4. ACETAMINOPHEN [Suspect]
     Indication: DRUG USE FOR UNKNOWN INDICATION
  5. LASIX [Suspect]
     Indication: DRUG USE FOR UNKNOWN INDICATION
  6. AMIODARONE (AMIODARONE) [Suspect]
     Indication: DRUG USE FOR UNKNOWN INDICATION
  7. ASCRIPTIN (ACETYLSALICYLIC ACID, ALUMINIUM HYDROXIDE, MAGNESIUM HYDROX [Concomitant]
  8. POTASSIUM CHLORIDE [Concomitant]

REACTIONS (17)
  - ALPHA HAEMOLYTIC STREPTOCOCCAL INFECTION [None]
  - BONE MARROW FAILURE [None]
  - CANDIDIASIS [None]
  - CHOLESTASIS [None]
  - DIARRHOEA [None]
  - DYSPHAGIA [None]
  - GRAFT VERSUS HOST DISEASE [None]
  - HAEMOGLOBIN DECREASED [None]
  - HYPERBILIRUBINAEMIA [None]
  - ORAL CANDIDIASIS [None]
  - PHARYNGOLARYNGEAL PAIN [None]
  - PLATELET COUNT DECREASED [None]
  - RASH ERYTHEMATOUS [None]
  - SEPSIS [None]
  - STEVENS-JOHNSON SYNDROME [None]
  - SYSTEMIC CANDIDA [None]
  - WHITE BLOOD CELL COUNT DECREASED [None]
